FAERS Safety Report 7205358-6 (Version None)
Quarter: 2010Q4

REPORT INFORMATION
  Report Type: 
  Country: None (occurrence: None)
  Receive Date: 20101231
  Receipt Date: 20101221
  Transmission Date: 20110411
  Serious: No
  Sender: FDA-Public Use
  Company Number: US-PFIZER INC-2010147445

PATIENT
  Sex: Female
  Weight: 81.6 kg

DRUGS (4)
  1. XALATAN [Suspect]
     Indication: GLAUCOMA
     Dosage: 1 GTT IN BOTH EYES
     Route: 047
     Dates: start: 20101109, end: 20101112
  2. TRAVATAN [Suspect]
     Dosage: 1 DROP IN EACH EYE AT BEDTIME
     Route: 047
  3. XANAX [Concomitant]
     Indication: ANXIETY
     Dosage: 0.25 MG, UNK
  4. LOTEMAX [Concomitant]

REACTIONS (3)
  - ASTHENIA [None]
  - FATIGUE [None]
  - RASH [None]
